FAERS Safety Report 5376243-X (Version None)
Quarter: 2007Q3

REPORT INFORMATION
  Report Type: 
  Country: None (occurrence: None)
  Receive Date: 20070702
  Receipt Date: 20070622
  Transmission Date: 20080115
  Serious: Yes (Hospitalization)
  Sender: FDA-Public Use
  Company Number: AU-ROCHE-442958

PATIENT
  Age: 81 Year
  Sex: Male
  Weight: 67 kg

DRUGS (12)
  1. CAPECITABINE [Suspect]
     Dosage: STARTING DOSE OF CAPECITABINE IS 2000MG/M2/D (IN 2 DIVIDED DOSES) D1-14 Q3WEEKLY.
     Route: 048
     Dates: start: 20060206
  2. PLAVIX [Concomitant]
     Dosage: FREQUENCY REPORTED AS 1
     Route: 048
  3. NEXIUM [Concomitant]
     Route: 048
     Dates: start: 20060405
  4. PANADOL [Concomitant]
     Dosage: FREQUENCY PRN
     Route: 048
     Dates: start: 20060406, end: 20060408
  5. ACETAMINOPHEN W/ CODEINE [Concomitant]
     Dosage: FREQUENCY PRN
     Route: 048
     Dates: start: 20060406, end: 20060408
  6. ASPIRIN [Concomitant]
     Route: 048
     Dates: start: 20060405
  7. KARVEA [Concomitant]
     Route: 048
     Dates: start: 20060405
  8. FGF TABS [Concomitant]
     Dosage: DRUG NAME REPORTED AS FGF
     Route: 048
     Dates: start: 20060405, end: 20060408
  9. MYLANTA [Concomitant]
     Dosage: FREQUENCY PRN
     Route: 048
     Dates: start: 20060406, end: 20060406
  10. IMODIUM [Concomitant]
     Dosage: REPORTED IMMODIUM FREQUENCY PRN
     Route: 048
     Dates: start: 20060405
  11. OXYCONTIN [Concomitant]
     Route: 048
     Dates: start: 20060408, end: 20060408
  12. GASTRO GEL [Concomitant]
     Dosage: FREQUENCY REPORTED AS STAT
     Route: 048
     Dates: start: 20060408, end: 20060408

REACTIONS (2)
  - MUCOSAL INFLAMMATION [None]
  - SMALL INTESTINAL OBSTRUCTION [None]
